FAERS Safety Report 5444063-3 (Version None)
Quarter: 2007Q3

REPORT INFORMATION
  Report Type: 
  Country: None (occurrence: None)
  Receive Date: 20070831
  Receipt Date: 20070813
  Transmission Date: 20080115
  Serious: Yes (Hospitalization, Other)
  Sender: FDA-Public Use
  Company Number: 2007RL000362

PATIENT
  Age: 77 Year
  Sex: Male

DRUGS (4)
  1. RYTHMOL [Suspect]
     Indication: ATRIAL FIBRILLATION
     Dosage: 325 MG; BID; PO
     Route: 048
     Dates: start: 20050101, end: 20070701
  2. SOTALOL HYDROCHLORIDE [Suspect]
     Dosage: ; PO
     Route: 048
     Dates: start: 20070701
  3. CRESTOR [Concomitant]
  4. ^A NUMBER OF MEDS^ [Concomitant]

REACTIONS (3)
  - AORTIC VALVE REPAIR [None]
  - ATRIAL FIBRILLATION [None]
  - CONDITION AGGRAVATED [None]
